FAERS Safety Report 9568475 (Version 1)
Quarter: 2013Q3

REPORT INFORMATION
  Report Type: Spontaneous
  Country: US (occurrence: US)
  Receive Date: 20130930
  Receipt Date: 20130930
  Transmission Date: 20140515
  Serious: No
  Sender: FDA-Public Use
  Company Number: US-AMGEN-USASP2013046272

PATIENT
  Age: 65 Year
  Sex: Female
  Weight: 88.89 kg

DRUGS (12)
  1. ENBREL [Suspect]
     Indication: PRODUCT USED FOR UNKNOWN INDICATION
     Dosage: 50 MG, QWK
     Route: 058
  2. METHOTREXATE [Concomitant]
     Dosage: 2.5 MG, UNK
  3. SYNTHROID [Concomitant]
     Dosage: 88 MUG, UNK
  4. METOPROLOL [Concomitant]
     Dosage: 50 MG, UNK
  5. PRILOSEC                           /00661201/ [Concomitant]
     Dosage: 10 MG, UNK
  6. VIT D3 [Concomitant]
     Dosage: 1000 UNK, UNK
  7. VIT C                              /00008001/ [Concomitant]
     Dosage: 500 UNK, UNK
  8. CALCIUM MAGNESIUM ZINC             /01320801/ [Concomitant]
     Dosage: UNK
  9. FOLIC ACID [Concomitant]
     Dosage: UNK
  10. TYLENOL ARTHRITIS [Concomitant]
     Dosage: 650 MG, UNK
  11. COQ10                              /00517201/ [Concomitant]
     Dosage: 100 MG, UNK
  12. PROBIOTIC                          /06395501/ [Concomitant]
     Dosage: UNK

REACTIONS (1)
  - Rash [Recovering/Resolving]
